FAERS Safety Report 4966468-7 (Version None)
Quarter: 2006Q2

REPORT INFORMATION
  Report Type: 
  Country: None (occurrence: None)
  Receive Date: 20060407
  Receipt Date: 20051111
  Transmission Date: 20061013
  Serious: Yes (Other)
  Sender: FDA-Public Use
  Company Number: PHNU2005DE03738

PATIENT
  Age: 65 Year
  Sex: Female
  Weight: 43 kg

DRUGS (10)
  1. IDARUBICIN HCL [Concomitant]
     Dosage: 4 CYCLES
     Route: 065
     Dates: start: 20020401, end: 20020601
  2. DEXAMETHASONE TAB [Concomitant]
     Dosage: 4 CYCLES
     Route: 065
     Dates: start: 20020401, end: 20020601
  3. DEXAMETHASONE TAB [Concomitant]
     Dosage: 1 CYCLE
     Route: 065
     Dates: start: 20051001, end: 20051001
  4. IFOSFAMIDE [Concomitant]
     Dosage: 1 CYCLE
     Route: 065
     Dates: start: 20020701, end: 20020701
  5. EPIRUBICIN [Concomitant]
     Dosage: 1 CYCLE
     Route: 065
     Dates: start: 20020701, end: 20020701
  6. ETOPOSIDE [Concomitant]
     Dosage: 1 CYCLE
     Route: 065
     Dates: start: 20020701, end: 20020701
  7. BORTEZOMIB [Concomitant]
     Dosage: 1 CYCLE
     Route: 065
     Dates: start: 20051001, end: 20051001
  8. ZOMETA [Suspect]
     Indication: MULTIPLE MYELOMA
     Dosage: 4 MG, QMO
     Route: 042
     Dates: start: 20020401, end: 20051101
  9. MELPHALAN [Concomitant]
     Dosage: UNK, UNK
     Route: 065
     Dates: start: 20020901, end: 20020901
  10. MELPHALAN [Concomitant]
     Route: 065
     Dates: start: 20021201, end: 20021201

REACTIONS (2)
  - DENTAL TREATMENT [None]
  - OSTEONECROSIS [None]
